FAERS Safety Report 11004231 (Version 1)
Quarter: 2015Q2

REPORT INFORMATION
  Report Type: Spontaneous
  Country: IT (occurrence: IT)
  Receive Date: 20150409
  Receipt Date: 20150409
  Transmission Date: 20150821
  Serious: Yes (Other)
  Sender: FDA-Public Use
  Company Number: IT-PFIZER INC-2015119627

PATIENT
  Age: 54 Year
  Sex: Female

DRUGS (4)
  1. MORPHINE SULFATE. [Suspect]
     Active Substance: MORPHINE SULFATE
     Indication: PAIN
     Dosage: 0.9 MG, DAILY
     Route: 037
     Dates: start: 201009
  2. MORPHINE SULFATE. [Suspect]
     Active Substance: MORPHINE SULFATE
     Dosage: 2.5 MG, DAILY
     Route: 037
     Dates: start: 20110530
  3. MORPHINE SULFATE. [Suspect]
     Active Substance: MORPHINE SULFATE
     Dosage: 3.2 MG, DAILY
     Route: 037
     Dates: start: 20110511
  4. MORPHINE SULFATE. [Suspect]
     Active Substance: MORPHINE SULFATE
     Dosage: 1.5 MG, DAILY
     Route: 037
     Dates: start: 201101

REACTIONS (1)
  - Arachnoiditis [Recovered/Resolved]
